FAERS Safety Report 9897208 (Version 1)
Quarter: 2014Q1

REPORT INFORMATION
  Report Type: Spontaneous
  Country: CH (occurrence: CH)
  Receive Date: 20140214
  Receipt Date: 20140214
  Transmission Date: 20141002
  Serious: Yes (Hospitalization, Other)
  Sender: FDA-Public Use
  Company Number: CH-MERCK-1402CHE002990

PATIENT
  Age: 79 Year
  Sex: Female

DRUGS (16)
  1. REMERON [Suspect]
     Dosage: 45 MG, QD(LACTAB DAILY)
     Route: 048
  2. PRIADEL [Suspect]
     Indication: DEPRESSION
     Dosage: 200 MG, QD (RETARD 400MG HALF A TABLET DAILY)
     Route: 048
     Dates: start: 20131228, end: 20140114
  3. PRIADEL [Suspect]
     Indication: BIPOLAR DISORDER
  4. VALSARTAN [Suspect]
     Dosage: 160 MG, QD
     Route: 048
     Dates: end: 20140114
  5. CYMBALTA [Suspect]
     Dosage: 60 MG, QD
     Route: 048
  6. GABAPENTIN [Concomitant]
     Dosage: 100 MG, TID
     Route: 048
  7. ABILIFY [Concomitant]
     Dosage: 15 MG, QD
     Route: 048
  8. SERESTA [Concomitant]
     Dosage: 22.5 MG, 1.5 TABLETS PER DAY
     Route: 048
  9. BALDRIAN (VALERIANA OFFICINALIS TINCTURE) [Concomitant]
     Dosage: 30 DROPS,ONCE DAILY (QD)
     Route: 048
  10. ELTROXIN (ELTROXIN-LF) [Concomitant]
     Indication: HYPERTHYROIDISM
     Dosage: 0.05MG TABLET 4 DAYS PER WEEK (EVERY OTHER DAY-QOD), AND 0.01MG THE OTHER 3 DAYS OF THE WEEK,
     Route: 048
  11. DUPHALAC [Concomitant]
     Dosage: 20 ML, QD
     Route: 048
  12. LAXOBERON [Concomitant]
     Dosage: 7.5 MG, QD,10DROPS (FORMULATION:DROPS)
  13. CALCIUM SANDOZ D3 [Concomitant]
     Dosage: UNK UNK, QD (ONCE DAILY)
     Route: 048
  14. VITARUBIN (HYDROXOCOBALAMIN ACETATE) [Concomitant]
     Dosage: UNK UNK, 4 X PER YEAR
     Route: 030
  15. DAIVOBET [Concomitant]
     Dosage: UNK, QW
     Route: 003
  16. BETNOVATE [Concomitant]
     Dosage: 1 MG/ML,BETNOVATE SCALP,, QW

REACTIONS (8)
  - Renal failure chronic [Recovered/Resolved]
  - Antidepressant drug level increased [Recovered/Resolved]
  - Fatigue [Recovered/Resolved]
  - Asthenia [Recovered/Resolved]
  - Tremor [Recovered/Resolved]
  - Paresis [Recovered/Resolved]
  - Dysarthria [Recovered/Resolved]
  - Dysphagia [Recovered/Resolved]
